FAERS Safety Report 19007890 (Version 2)
Quarter: 2023Q4

REPORT INFORMATION
  Report Type: Other
  Country: IN (occurrence: None)
  Receive Date: 20210315
  Receipt Date: 20231127
  Transmission Date: 20240110
  Serious: Yes (Other)
  Sender: FDA-Public Use
  Company Number: IN-SAPTALIS PHARMACEUTICALS,LLC-000052

PATIENT
  Age: 25 Year
  Sex: Female

DRUGS (1)
  1. TRIAMCINOLONE ACETONIDE [Suspect]
     Active Substance: TRIAMCINOLONE ACETONIDE
     Indication: Cystoid macular oedema
     Dosage: 20 MG/0.5 ML
     Route: 031

REACTIONS (2)
  - Glaucoma [Unknown]
  - Central serous chorioretinopathy [Recovering/Resolving]
